FAERS Safety Report 5510920-2 (Version None)
Quarter: 2007Q4

REPORT INFORMATION
  Report Type: 
  Country: None (occurrence: None)
  Receive Date: 20071106
  Receipt Date: 20071106
  Transmission Date: 20080405
  Serious: Yes (Hospitalization)
  Sender: FDA-Public Use
  Company Number: None

PATIENT
  Age: 37 Month
  Sex: Female
  Weight: 67.1324 kg

DRUGS (1)
  1. CHANTIX [Suspect]
     Indication: SMOKING CESSATION THERAPY
     Dosage: 1 2X PER DAY PO
     Route: 048
     Dates: start: 20071101, end: 20071105

REACTIONS (2)
  - AMNESIA [None]
  - PSYCHOTIC DISORDER [None]
